FAERS Safety Report 8398478-4 (Version None)
Quarter: 2012Q2

REPORT INFORMATION
  Report Type: 
  Country: None (occurrence: None)
  Receive Date: 20120531
  Receipt Date: 20120516
  Transmission Date: 20120825
  Serious: Yes (Disabling)
  Sender: FDA-Public Use
  Company Number: FR-CELGENEUS-056-21880-11110782

PATIENT
  Sex: Female

DRUGS (6)
  1. LAMOTRIGINE [Concomitant]
     Dosage: 200 MILLIGRAM
     Route: 065
  2. DOXORUBICIN HCL [Suspect]
     Indication: OVARIAN CANCER
     Dosage: 30 MILLIGRAM/SQ. METER
     Route: 065
     Dates: start: 20111019
  3. CARBOPLATIN [Suspect]
     Indication: OVARIAN CANCER
     Dosage: 475 MILLIGRAM
     Route: 065
     Dates: start: 20111019
  4. LOVENOX [Concomitant]
     Dosage: 1 OTHER
     Route: 065
  5. REVLIMID [Suspect]
     Indication: OVARIAN CANCER
     Dosage: 15 MILLIGRAM
     Route: 048
     Dates: start: 20111020, end: 20111103
  6. OXAZEPAM [Concomitant]
     Dosage: 10 MILLIGRAM
     Route: 065

REACTIONS (1)
  - VISUAL ACUITY REDUCED TRANSIENTLY [None]
